FAERS Safety Report 9574393 (Version 4)
Quarter: 2013Q4

REPORT INFORMATION
  Report Type: Report from Study
  Country: ES (occurrence: ES)
  Receive Date: 20131001
  Receipt Date: 20131111
  Transmission Date: 20140711
  Serious: Yes (Hospitalization)
  Sender: FDA-Public Use
  Company Number: ES-ROCHE-1277872

PATIENT
  Age: 71 Year
  Sex: Female

DRUGS (24)
  1. PERTUZUMAB [Suspect]
     Indication: BREAST CANCER
     Dosage: LOADING DOSE AS PER PROTOCOL?PERMANENTLY DISCONTINUED ON 13/SEP/2013.
     Route: 042
     Dates: start: 20130913, end: 20130913
  2. TRASTUZUMAB [Suspect]
     Indication: BREAST CANCER
     Dosage: LOADING DOSE
     Route: 042
     Dates: start: 20130613, end: 20130613
  3. TRASTUZUMAB [Suspect]
     Dosage: MAINTENANCE DOSE?LAST DOSE PRIOR TO SAE: 16/AUG/2013.?PERMANENTLY DISCONTINUED ON 13/SEP/2013.
     Route: 042
     Dates: end: 20130913
  4. DOCETAXEL [Suspect]
     Indication: BREAST CANCER
     Dosage: LAST DOSE PRIOR TO SAE: 16/AUG/2013.?PERMANENTLY DISCONTINUED ON 13/SEP/2013.
     Route: 042
     Dates: start: 20130613, end: 20130913
  5. METOCLOPRAMIDE [Concomitant]
     Indication: NAUSEA
     Route: 065
     Dates: start: 20130816, end: 20130925
  6. METOCLOPRAMIDE [Concomitant]
     Indication: PROPHYLAXIS
     Route: 065
     Dates: start: 20130816
  7. FORTECORTIN (SPAIN) [Concomitant]
     Indication: PAIN
     Route: 065
     Dates: start: 20130914, end: 20130915
  8. FORTECORTIN (SPAIN) [Concomitant]
     Route: 065
     Dates: start: 20130916
  9. FORTECORTIN (SPAIN) [Concomitant]
     Route: 065
     Dates: start: 20130613, end: 20130613
  10. FORTECORTIN (SPAIN) [Concomitant]
     Route: 065
     Dates: start: 20130614, end: 20130616
  11. OPENVAS (SPAIN) [Concomitant]
     Route: 065
     Dates: start: 20090701, end: 20130914
  12. ESCITALOPRAM [Concomitant]
     Route: 065
     Dates: start: 201212
  13. PANTOPRAZOLE [Concomitant]
     Indication: PROPHYLAXIS AGAINST GASTROINTESTINAL ULCER
     Route: 065
     Dates: start: 201210
  14. ZOMETA [Concomitant]
     Indication: METASTASES TO BONE
     Route: 065
     Dates: start: 20130613, end: 20130613
  15. ONDANSETRON [Concomitant]
     Route: 065
     Dates: start: 20130614, end: 20130614
  16. KYTRIL [Concomitant]
     Route: 065
     Dates: start: 20130614, end: 20130615
  17. PARACETAMOL [Concomitant]
     Route: 065
     Dates: start: 20130614, end: 20130614
  18. CALODIS [Concomitant]
     Indication: METASTASES TO BONE
     Route: 065
     Dates: start: 20130604
  19. POLARAMINE [Concomitant]
     Indication: ECZEMA
     Route: 065
     Dates: start: 20130614, end: 20130614
  20. ARTEDIL [Concomitant]
     Route: 065
     Dates: start: 200907, end: 20130914
  21. VISCOFRESH [Concomitant]
     Route: 065
     Dates: start: 20130816, end: 20130826
  22. OFTALMOWELL [Concomitant]
     Route: 065
     Dates: start: 20130816, end: 20130823
  23. ARANESP [Concomitant]
     Route: 065
     Dates: start: 20130913, end: 20130913
  24. NEUPOGEN [Concomitant]
     Indication: PROPHYLAXIS
     Route: 065
     Dates: start: 20130913

REACTIONS (1)
  - Infusion related reaction [Recovered/Resolved]
